FAERS Safety Report 11130974 (Version 1)
Quarter: 2015Q2

REPORT INFORMATION
  Report Type: Spontaneous
  Country: US (occurrence: US)
  Receive Date: 20150522
  Receipt Date: 20150522
  Transmission Date: 20150821
  Serious: No
  Sender: FDA-Public Use
  Company Number: US-BIOGENIDEC-2015BI067331

PATIENT
  Sex: Female

DRUGS (1)
  1. AVONEX [Suspect]
     Active Substance: INTERFERON BETA-1A
     Indication: PRODUCT USED FOR UNKNOWN INDICATION
     Route: 030

REACTIONS (6)
  - Dysphemia [Unknown]
  - Multiple sclerosis relapse [Unknown]
  - VIIth nerve paralysis [Unknown]
  - Confusional state [Unknown]
  - Musculoskeletal pain [Unknown]
  - Tremor [Unknown]

NARRATIVE: CASE EVENT DATE: 201412
